FAERS Safety Report 19905146 (Version 1)
Quarter: 2021Q3

REPORT INFORMATION
  Report Type: Spontaneous
  Country: US (occurrence: US)
  Receive Date: 20210930
  Receipt Date: 20210930
  Transmission Date: 20211014
  Serious: Yes (Other)
  Sender: FDA-Public Use
  Company Number: None

PATIENT
  Age: 50 Year
  Sex: Female
  Weight: 53.1 kg

DRUGS (1)
  1. LARIN 1/20 [Suspect]
     Active Substance: ETHINYL ESTRADIOL\NORETHINDRONE ACETATE
     Indication: CONTRACEPTION
     Dates: start: 20130101, end: 20210401

REACTIONS (4)
  - Cyclic vomiting syndrome [None]
  - Alopecia [None]
  - Migraine [None]
  - Anger [None]

NARRATIVE: CASE EVENT DATE: 20130101
